FAERS Safety Report 24722308 (Version 1)
Quarter: 2024Q4

REPORT INFORMATION
  Report Type: Spontaneous
  Country: US (occurrence: US)
  Receive Date: 20241211
  Receipt Date: 20241211
  Transmission Date: 20250115
  Serious: No
  Sender: PFIZER
  Company Number: US-PFIZER INC-PV202400159721

PATIENT
  Age: 63 Year
  Sex: Male

DRUGS (1)
  1. NURTEC ODT [Suspect]
     Active Substance: RIMEGEPANT SULFATE
     Indication: Migraine
     Dosage: 75 MG, (1 TABLET ON OR UNDER TONGUE ONCE A DAY AS NEEDED, MAX 1 / 24 HOURS
     Route: 048

REACTIONS (1)
  - Drug ineffective [Unknown]
